FAERS Safety Report 9890819 (Version 1)
Quarter: 2014Q1

REPORT INFORMATION
  Report Type: Spontaneous
  Country: US (occurrence: None)
  Receive Date: 20140207
  Receipt Date: 20140207
  Transmission Date: 20141002
  Serious: Yes (Other)
  Sender: FDA-Public Use
  Company Number: 2014P1000804

PATIENT
  Age: 68 Year
  Sex: Male

DRUGS (3)
  1. GABAPENTIN [Suspect]
     Indication: HYPOAESTHESIA
     Dosage: 300 MG ; HS ;
  2. GABAPENTIN [Suspect]
     Indication: HYPOAESTHESIA
     Dosage: 300 MG ; HS ;
  3. VITAMIN B SUPPLEMENTATION [Concomitant]

REACTIONS (8)
  - Neurotoxicity [None]
  - Asterixis [None]
  - Areflexia [None]
  - Sensory disturbance [None]
  - Hypotonia [None]
  - White blood cell count increased [None]
  - Normochromic normocytic anaemia [None]
  - Myoclonus [None]
